FAERS Safety Report 4267140-1 (Version None)
Quarter: 2004Q1

REPORT INFORMATION
  Report Type: 
  Country: None (occurrence: None)
  Receive Date: 20040107
  Receipt Date: 20031207
  Transmission Date: 20041129
  Serious: Yes (Other)
  Sender: FDA-Public Use
  Company Number: HQWYE502709DEC03

PATIENT
  Sex: Male

DRUGS (4)
  1. NEUMEGA [Suspect]
     Indication: CHRONIC MYELOID LEUKAEMIA
     Dosage: SUBCUTANEOUS
     Route: 058
  2. GLEEVIC (IMATINIB MESYLATE) [Concomitant]
  3. LEUKINE [Concomitant]
  4. PROCRIT (ERYTHROPOIETIN) [Concomitant]

REACTIONS (6)
  - DRUG INEFFECTIVE [None]
  - HEADACHE [None]
  - NEUROPATHY [None]
  - PLATELET COUNT DECREASED [None]
  - SWELLING [None]
  - VISION BLURRED [None]
